FAERS Safety Report 20467529 (Version 2)
Quarter: 2022Q2

REPORT INFORMATION
  Report Type: Spontaneous
  Country: US (occurrence: US)
  Receive Date: 20220214
  Receipt Date: 20220507
  Transmission Date: 20220720
  Serious: No
  Sender: FDA-Public Use
  Company Number: US-AUROBINDO-AUR-APL-2021-050157

PATIENT
  Age: 80 Year
  Sex: Female
  Weight: 58 kg

DRUGS (2)
  1. GUAIFENESIN [Suspect]
     Active Substance: GUAIFENESIN
     Indication: Lower respiratory tract infection
     Dosage: NOT MORE THAN 02 FOR 09 HOURS
     Route: 065
     Dates: start: 20211130, end: 20211201
  2. GUAIFENESIN [Suspect]
     Active Substance: GUAIFENESIN
     Indication: Cough

REACTIONS (3)
  - Wrong technique in product usage process [Unknown]
  - Product size issue [Unknown]
  - Product use complaint [Unknown]

NARRATIVE: CASE EVENT DATE: 20211130
